FAERS Safety Report 8015598 (Version 2)
Quarter: 2012Q4

REPORT INFORMATION
  Report Type: 
  Country: IE (occurrence: IE)
  Receive Date: 20110629
  Receipt Date: 20121011
  Transmission Date: 20130627
  Serious: Yes (Hospitalization, Other)
  Sender: FDA-Public Use
  Company Number: PHHO2011IE09298

PATIENT
  Age: 91 Year
  Sex: Male
  Weight: 99 kg

DRUGS (15)
  1. BLINDED ALISKIREN [Suspect]
     Indication: CARDIAC FAILURE
     Dosage: Code not broken
     Route: 048
     Dates: start: 20100501, end: 2011
  2. BLINDED ENALAPRIL [Suspect]
     Indication: CARDIAC FAILURE
     Dosage: Code not broken
     Route: 048
     Dates: start: 20100501, end: 2011
  3. BLINDED NO TREATMENT RECEIVED [Suspect]
     Indication: CARDIAC FAILURE
     Dosage: Code not broken
     Route: 048
     Dates: start: 20100501, end: 2011
  4. BUMETANIDE [Concomitant]
     Indication: CARDIAC FAILURE
     Dosage: 1 mg, QD
     Route: 048
     Dates: start: 20100120
  5. INSPRA [Concomitant]
     Indication: CARDIAC FAILURE
     Dosage: 25 mg, QD
     Route: 048
     Dates: start: 200906
  6. CARVEDILOL [Concomitant]
     Indication: CARDIAC FAILURE
     Dosage: 6.25 mg, QD
     Route: 048
     Dates: start: 20100120
  7. LIPITOR [Concomitant]
     Indication: CARDIAC FAILURE
     Dosage: 40 mg, QD
     Route: 048
     Dates: start: 20090626
  8. LIPITOR [Concomitant]
     Indication: CARDIAC DISORDER
     Dosage: 40 mg, QD
     Dates: start: 2010
  9. ASPIRIN [Concomitant]
     Indication: CARDIAC FAILURE
     Dosage: 75 mg, QD
     Route: 048
     Dates: start: 2005
  10. ASPIRIN [Concomitant]
     Indication: CARDIAC DISORDER
  11. FERRITIN [Concomitant]
     Indication: ANAEMIA
     Dosage: 1000 ug, QD
     Route: 042
     Dates: start: 20110402
  12. BURINEX [Concomitant]
     Indication: CARDIAC FAILURE CHRONIC
     Dosage: 1 mg, BID
     Dates: start: 2011
  13. METOLAZONE [Concomitant]
     Indication: RENAL FAILURE CHRONIC
     Dosage: 2.5 mg, QW
     Dates: start: 2011
  14. COVERSYL [Concomitant]
     Indication: CARDIAC DISORDER
     Dosage: 5 mg, QD
     Dates: start: 2011
  15. ALLOPURINOL [Concomitant]
     Indication: GOUT
     Dosage: 100 mg, QD
     Dates: start: 2011

REACTIONS (2)
  - Syncope [Recovering/Resolving]
  - Lower respiratory tract infection [Not Recovered/Not Resolved]
